FAERS Safety Report 16061865 (Version 1)
Quarter: 2019Q1

REPORT INFORMATION
  Report Type: Spontaneous
  Country: PK (occurrence: PK)
  Receive Date: 20190312
  Receipt Date: 20190312
  Transmission Date: 20190418
  Serious: Yes (Death, Hospitalization, Other)
  Sender: FDA-Public Use
  Company Number: PK-BAYER-2019-049464

PATIENT
  Sex: Male

DRUGS (1)
  1. ULTRAVIST [Suspect]
     Active Substance: IOPROMIDE
     Indication: COMPUTERISED TOMOGRAM
     Dosage: UNK UNK, ONCE
     Route: 042
     Dates: start: 20190305, end: 20190305

REACTIONS (3)
  - Cardio-respiratory arrest [Fatal]
  - Mouth haemorrhage [None]
  - Eye haemorrhage [None]

NARRATIVE: CASE EVENT DATE: 20190305
